FAERS Safety Report 24183245 (Version 2)
Quarter: 2024Q3

REPORT INFORMATION
  Report Type: Spontaneous
  Country: FR (occurrence: FR)
  Receive Date: 20240807
  Receipt Date: 20240808
  Transmission Date: 20241017
  Serious: Yes (Life-Threatening)
  Sender: AUROBINDO
  Company Number: FR-AFSSAPS-AN2024000964

PATIENT
  Age: 73 Year
  Sex: Male

DRUGS (3)
  1. BISOPROLOL [Interacting]
     Active Substance: BISOPROLOL\BISOPROLOL FUMARATE
     Indication: Hypertension
     Dosage: 2.5 MILLIGRAM, ONCE A DAY
     Route: 048
     Dates: start: 2020, end: 20240604
  2. ALDACTAZINE [Interacting]
     Active Substance: ALTHIAZIDE\SPIRONOLACTONE
     Indication: Hypertension
     Dosage: 1 DOSAGE FORM, ONCE A DAY
     Route: 048
     Dates: start: 2023, end: 20240604
  3. ENTRESTO [Interacting]
     Active Substance: SACUBITRIL\VALSARTAN
     Indication: Dilated cardiomyopathy
     Dosage: 2 DOSAGE FORM, ONCE A DAY (ENTRESTO 97 MG/103 MG, FILM-COATED TABLET)
     Route: 048
     Dates: start: 2020, end: 20240604

REACTIONS (2)
  - Hypotension [Recovered/Resolved]
  - Drug interaction [Recovered/Resolved]

NARRATIVE: CASE EVENT DATE: 20240604
